FAERS Safety Report 13957692 (Version 1)
Quarter: 2017Q3

REPORT INFORMATION
  Report Type: Report from Study
  Country: US (occurrence: US)
  Receive Date: 20170911
  Receipt Date: 20170911
  Transmission Date: 20171128
  Serious: Yes (Other)
  Sender: FDA-Public Use
  Company Number: US-GILEAD-2017-0292118

PATIENT
  Age: 55 Year
  Sex: Female

DRUGS (2)
  1. EMTRICITABINE/TENOFOVIR ALAFENAMIDE [Suspect]
     Active Substance: EMTRICITABINE\TENOFOVIR
     Indication: HIV INFECTION
     Dosage: UNK UNKNOWN, UNK
     Route: 048
     Dates: start: 2014
  2. EMTRICITABINE/TENOFOVIR DISOPROXIL FUMARATE [Suspect]
     Active Substance: EMTRICITABINE\TENOFOVIR DISOPROXIL FUMARATE
     Indication: HIV INFECTION
     Dosage: UNK UNKNOWN, UNK
     Route: 048

REACTIONS (7)
  - Feeling cold [Unknown]
  - Acquired immunodeficiency syndrome [Not Recovered/Not Resolved]
  - Opportunistic infection [Unknown]
  - Skin discolouration [Unknown]
  - Hypertension [Unknown]
  - T-lymphocyte count abnormal [Unknown]
  - Fatigue [Unknown]

NARRATIVE: CASE EVENT DATE: 2008
